FAERS Safety Report 11199103 (Version 1)
Quarter: 2015Q2

REPORT INFORMATION
  Report Type: Spontaneous
  Country: US (occurrence: US)
  Receive Date: 20150618
  Receipt Date: 20150618
  Transmission Date: 20150821
  Serious: No
  Sender: FDA-Public Use
  Company Number: US-TEVA-490893USA

PATIENT
  Sex: Female

DRUGS (1)
  1. LAMOTRIGINE. [Suspect]
     Active Substance: LAMOTRIGINE
     Indication: DEMENTIA
     Dosage: 25 MILLIGRAM DAILY;
     Route: 048
     Dates: start: 20131220, end: 20140113

REACTIONS (1)
  - Rash [Unknown]
